FAERS Safety Report 20279309 (Version 1)
Quarter: 2022Q1

REPORT INFORMATION
  Report Type: Spontaneous
  Country: US (occurrence: US)
  Receive Date: 20220103
  Receipt Date: 20220103
  Transmission Date: 20220423
  Serious: No
  Sender: FDA-Public Use
  Company Number: US-ELI_LILLY_AND_COMPANY-US202201000111

PATIENT
  Age: 73 Year
  Sex: Female

DRUGS (2)
  1. FORTEO [Suspect]
     Active Substance: TERIPARATIDE
     Indication: Spinal fracture
     Dosage: 20 UG, DAILY
     Route: 065
     Dates: start: 20211224
  2. OXYTOCIN [Concomitant]
     Active Substance: OXYTOCIN
     Indication: Pain

REACTIONS (5)
  - Injection site injury [Recovering/Resolving]
  - Injection site haemorrhage [Recovering/Resolving]
  - Overdose [Recovering/Resolving]
  - Product storage error [Not Recovered/Not Resolved]
  - Off label use [Unknown]

NARRATIVE: CASE EVENT DATE: 20211224
